FAERS Safety Report 5401735-4 (Version None)
Quarter: 2007Q3

REPORT INFORMATION
  Report Type: 
  Country: None (occurrence: None)
  Receive Date: 20070731
  Receipt Date: 20070719
  Transmission Date: 20080115
  Serious: Yes (Hospitalization)
  Sender: FDA-Public Use
  Company Number: FI-PFIZER INC-2007060469

PATIENT
  Sex: Male

DRUGS (9)
  1. LYRICA [Suspect]
     Indication: NEURALGIA
     Route: 048
  2. CONCERTA [Concomitant]
  3. EFFEXOR [Concomitant]
  4. MESALAZINE [Concomitant]
  5. SALAZOPYRIN EN [Concomitant]
  6. SYMBICORT [Concomitant]
  7. XYZAL [Concomitant]
  8. NASACORT [Concomitant]
  9. OPAMOX [Concomitant]

REACTIONS (3)
  - ANXIETY [None]
  - DISTURBANCE IN ATTENTION [None]
  - ILLOGICAL THINKING [None]
